FAERS Safety Report 14900570 (Version 1)
Quarter: 2018Q2

REPORT INFORMATION
  Report Type: Spontaneous
  Country: US (occurrence: US)
  Receive Date: 20180516
  Receipt Date: 20180516
  Transmission Date: 20180711
  Serious: No
  Sender: FDA-Public Use
  Company Number: US-PFIZER INC-2018194245

PATIENT
  Age: 66 Year
  Sex: Female
  Weight: 81.65 kg

DRUGS (2)
  1. LYRICA [Suspect]
     Active Substance: PREGABALIN
     Indication: FIBROMYALGIA
     Dosage: 75 MG, 2X/DAY (BEFORE NIGHT/ANOTHER ONE DURING THE DAY ALSO)
     Route: 048
  2. LYRICA [Suspect]
     Active Substance: PREGABALIN
     Dosage: 75 MG, UNK (ONE BEFORE NIGHT AND SOMETIMES AND ANOTHER ONE DURING THE DAY)
     Route: 048
     Dates: start: 201804

REACTIONS (3)
  - Confusional state [Unknown]
  - Amnesia [Recovering/Resolving]
  - Memory impairment [Recovering/Resolving]

NARRATIVE: CASE EVENT DATE: 201804
